FAERS Safety Report 4859896-1 (Version None)
Quarter: 2005Q4

REPORT INFORMATION
  Report Type: 
  Country: None (occurrence: None)
  Receive Date: 20051215
  Receipt Date: 20051201
  Transmission Date: 20060501
  Serious: No
  Sender: FDA-Public Use
  Company Number: 2005PV005208

PATIENT
  Age: 62 Year
  Sex: Male
  Weight: 81.6475 kg

DRUGS (10)
  1. SYMLIN [Suspect]
     Indication: DIABETES MELLITUS INSULIN-DEPENDENT
     Dosage: SEE IMAGE
     Route: 058
     Dates: start: 20051014, end: 20051001
  2. SYMLIN [Suspect]
     Indication: DIABETES MELLITUS INSULIN-DEPENDENT
     Dosage: SEE IMAGE
     Route: 058
     Dates: start: 20051001
  3. INSULIN [Concomitant]
  4. NPH INSULIN [Concomitant]
  5. NORVASC [Concomitant]
  6. ASPIRIN [Concomitant]
  7. LOPRESSOR [Concomitant]
  8. LASIX [Concomitant]
  9. CLONIDINE [Concomitant]
  10. PRAVACHOL [Concomitant]

REACTIONS (8)
  - FACE INJURY [None]
  - FALL [None]
  - FEELING ABNORMAL [None]
  - HAEMORRHAGE [None]
  - HYPOGLYCAEMIA [None]
  - OFF LABEL USE [None]
  - ROAD TRAFFIC ACCIDENT [None]
  - TREATMENT NONCOMPLIANCE [None]
